FAERS Safety Report 22191256 (Version 1)
Quarter: 2023Q2

REPORT INFORMATION
  Report Type: Spontaneous
  Country: US (occurrence: None)
  Receive Date: 20230407
  Receipt Date: 20230407
  Transmission Date: 20230722
  Serious: Yes (Other)
  Sender: FDA-Public Use
  Company Number: None

PATIENT
  Age: 36 Year
  Sex: Female
  Weight: 58.5 kg

DRUGS (5)
  1. METHYLPHENIDATE [Suspect]
     Active Substance: METHYLPHENIDATE
     Indication: Attention deficit hyperactivity disorder
     Dosage: OTHER QUANTITY : 1 TABLET(S);?FREQUENCY : DAILY;?
     Route: 048
     Dates: start: 20230320, end: 20230407
  2. CONCERTA [Concomitant]
  3. STRATTERA [Concomitant]
  4. OMEGA 3 [Concomitant]
     Active Substance: CAPSAICIN
  5. VITAMINS [Concomitant]
     Active Substance: VITAMINS

REACTIONS (7)
  - Product substitution issue [None]
  - Malaise [None]
  - Drug ineffective [None]
  - Therapeutic response shortened [None]
  - Impaired quality of life [None]
  - Decreased activity [None]
  - Disturbance in attention [None]

NARRATIVE: CASE EVENT DATE: 20230320
